FAERS Safety Report 24233184 (Version 1)
Quarter: 2024Q3

REPORT INFORMATION
  Report Type: Spontaneous
  Country: US (occurrence: None)
  Receive Date: 20240820
  Receipt Date: 20240820
  Transmission Date: 20241016
  Serious: Yes (Death)
  Sender: Public
  Company Number: None

PATIENT
  Age: 82 Year
  Sex: Male

DRUGS (1)
  1. XEOMIN [Suspect]
     Active Substance: INCOBOTULINUMTOXINA
     Indication: Hemiplegia
     Dosage: OTHER STRENGTH : U/VL;?OTHER FREQUENCY : EVERY 90 DAYS;?
     Route: 030
     Dates: start: 202401

REACTIONS (1)
  - Adult failure to thrive [None]

NARRATIVE: CASE EVENT DATE: 20240807
